FAERS Safety Report 22115777 (Version 1)
Quarter: 2023Q1

REPORT INFORMATION
  Report Type: Spontaneous
  Country: CA (occurrence: CA)
  Receive Date: 20230320
  Receipt Date: 20230320
  Transmission Date: 20230418
  Serious: Yes (Hospitalization)
  Sender: FDA-Public Use
  Company Number: CA-JNJFOC-20230326437

PATIENT
  Age: 78 Year
  Sex: Female

DRUGS (2)
  1. RISPERDAL [Suspect]
     Active Substance: RISPERIDONE
     Indication: Delirium
     Route: 048
  2. RISPERDAL [Suspect]
     Active Substance: RISPERIDONE
     Indication: Dementia

REACTIONS (5)
  - Hallucination [Unknown]
  - Seizure [Unknown]
  - Abdominal distension [Unknown]
  - Abnormal behaviour [Unknown]
  - Aggression [Unknown]
